FAERS Safety Report 7079798 (Version 2)
Quarter: 2014Q3

REPORT INFORMATION
  Report Type: Spontaneous
  Country: US (occurrence: None)
  Receive Date: 20090805
  Receipt Date: 20140919
  Transmission Date: 20150326
  Serious: Yes (Other)
  Sender: FDA-Public Use
  Company Number: 2009S1005991

PATIENT
  Age: 70 Year
  Weight: 178.3 kg

DRUGS (8)
  1. ASPIRIN (ACETYLSALICYLIC ACID) [Concomitant]
     Active Substance: ASPIRIN
  2. PAXIL [Concomitant]
     Active Substance: PAROXETINE HYDROCHLORIDE
  3. CALCIUM WITH D (COLECALCIFEROL, CALCIUM CARBONATE) [Concomitant]
  4. ENALAPRIL [Concomitant]
     Active Substance: ENALAPRIL
  5. HYDROCHLOROTHIAZIDE. [Concomitant]
     Active Substance: HYDROCHLOROTHIAZIDE
  6. ALPRAZOLAM. [Concomitant]
     Active Substance: ALPRAZOLAM
  7. PHOSPHO-SODA [Suspect]
     Active Substance: SODIUM PHOSPHATE, DIBASIC\SODIUM PHOSPHATE, MONOBASIC
     Indication: COLONOSCOPY
     Dosage: 2 IN 24 HOURS
     Route: 048
     Dates: start: 20040307, end: 20040307
  8. MULTIVITAMINS (VITAMINS NOS) [Concomitant]

REACTIONS (2)
  - Renal failure chronic [None]
  - Hyperparathyroidism secondary [None]

NARRATIVE: CASE EVENT DATE: 20050708
